FAERS Safety Report 4439682-7 (Version None)
Quarter: 2004Q3

REPORT INFORMATION
  Report Type: 
  Country: None (occurrence: None)
  Receive Date: 20040831
  Receipt Date: 20040826
  Transmission Date: 20050211
  Serious: Yes (Life-Threatening, Hospitalization)
  Sender: FDA-Public Use
  Company Number: FRWYE004527AUG04

PATIENT
  Age: 57 Year
  Sex: Male

DRUGS (3)
  1. RAPAMUNE [Suspect]
     Indication: PROPHYLAXIS AGAINST TRANSPLANT REJECTION
     Dosage: 4 MG DAILY AT EVENT ONSET; ORAL
     Route: 048
     Dates: start: 20030403
  2. CELLCEPT [Suspect]
     Indication: PROPHYLAXIS AGAINST TRANSPLANT REJECTION
     Dosage: 1 G DAILY ATE EVENT ONSET, ORAL
     Route: 048
     Dates: start: 20030402
  3. PREDNISONE [Suspect]
     Indication: PROPHYLAXIS AGAINST TRANSPLANT REJECTION
     Dosage: 5 MG DAILY AT EVENT ONSET, ORAL
     Route: 048
     Dates: start: 20030402

REACTIONS (5)
  - ESCHERICHIA SEPSIS [None]
  - ESCHERICHIA URINARY TRACT INFECTION [None]
  - EXTREMITY NECROSIS [None]
  - FINGER AMPUTATION [None]
  - PARONYCHIA [None]
